FAERS Safety Report 17282009 (Version 1)
Quarter: 2020Q1

REPORT INFORMATION
  Report Type: Spontaneous
  Country: GB (occurrence: GB)
  Receive Date: 20200117
  Receipt Date: 20200117
  Transmission Date: 20200409
  Serious: Yes (Hospitalization, Other)
  Sender: FDA-Public Use
  Company Number: GB-TORRENT-00022819

PATIENT
  Age: 50 Year
  Sex: Female

DRUGS (13)
  1. THIORIDAZINE [Concomitant]
     Active Substance: THIORIDAZINE
     Indication: PSYCHOTIC SYMPTOM
     Dosage: UNKNOWN
  2. RISPERIDONE. [Suspect]
     Active Substance: RISPERIDONE
     Indication: PSYCHOTIC SYMPTOM
     Dosage: UNKNOWN
  3. SODIUM VALPROATE [Concomitant]
     Active Substance: VALPROATE SODIUM
     Indication: PRODUCT USED FOR UNKNOWN INDICATION
  4. LITHIUM CARBONATE. [Suspect]
     Active Substance: LITHIUM CARBONATE
     Indication: HYPOMANIA
     Dosage: 700MG/DAY
  5. LAMOTRIGINE. [Concomitant]
     Active Substance: LAMOTRIGINE
     Indication: PSYCHOTIC SYMPTOM
     Dosage: UNKNOWN
  6. TRIMETHOPRIM. [Concomitant]
     Active Substance: TRIMETHOPRIM
     Indication: PSYCHOTIC DISORDER
     Dosage: UNKNOWN
  7. QUETIAPINE. [Suspect]
     Active Substance: QUETIAPINE
     Indication: PSYCHOTIC SYMPTOM
     Dosage: 300MG/DAY
  8. CHLORPROMAZINE. [Concomitant]
     Active Substance: CHLORPROMAZINE
     Indication: PSYCHOTIC SYMPTOM
     Dosage: UNKNOWN
  9. ZUCLOPENTHIXOL [Concomitant]
     Active Substance: ZUCLOPENTHIXOL
     Indication: PSYCHOTIC SYMPTOM
     Dosage: UNKNOWN
  10. OMEPRAZOLE. [Concomitant]
     Active Substance: OMEPRAZOLE
     Indication: PRODUCT USED FOR UNKNOWN INDICATION
     Dosage: UNKNOWN
  11. OLANZAPINE. [Concomitant]
     Active Substance: OLANZAPINE
     Indication: PSYCHOTIC SYMPTOM
     Dosage: UNKNOWN
  12. LEVOTHYROXINE. [Concomitant]
     Active Substance: LEVOTHYROXINE
     Indication: PRODUCT USED FOR UNKNOWN INDICATION
     Dosage: UNKNOWN
  13. CARBAMAZEPINE. [Concomitant]
     Active Substance: CARBAMAZEPINE
     Indication: PSYCHOTIC SYMPTOM
     Dosage: UNKNOWN

REACTIONS (27)
  - Neurotoxicity [Recovered/Resolved]
  - Hallucination, auditory [Recovered/Resolved]
  - Cogwheel rigidity [Recovered/Resolved]
  - Memory impairment [Recovered/Resolved]
  - Anal incontinence [Recovered/Resolved]
  - Urinary incontinence [Recovered/Resolved]
  - Altered visual depth perception [Recovered/Resolved]
  - Aggression [Recovered/Resolved]
  - Lethargy [Recovered/Resolved]
  - Tardive dyskinesia [Recovered/Resolved]
  - Resting tremor [Recovered/Resolved]
  - Hypothyroidism [Unknown]
  - Fine motor skill dysfunction [Recovered/Resolved]
  - Disorientation [Recovered/Resolved]
  - Confusional state [Recovered/Resolved]
  - Cognitive disorder [Recovered/Resolved]
  - Polydipsia [Recovered/Resolved]
  - Extrapyramidal disorder [Not Recovered/Not Resolved]
  - Disturbance in attention [Recovered/Resolved]
  - Dementia [Recovered/Resolved]
  - Fear [Recovered/Resolved]
  - Depression [Recovered/Resolved]
  - Nephropathy [Unknown]
  - Thinking abnormal [Recovered/Resolved]
  - Muscle twitching [Recovered/Resolved]
  - Hallucination, visual [Recovered/Resolved]
  - Mobility decreased [Recovered/Resolved]

NARRATIVE: CASE EVENT DATE: 2013
